FAERS Safety Report 6753231-X (Version None)
Quarter: 2010Q2

REPORT INFORMATION
  Report Type: 
  Country: None (occurrence: None)
  Receive Date: 20100526
  Receipt Date: 20100420
  Transmission Date: 20101027
  Serious: No
  Sender: FDA-Public Use
  Company Number: 307903

PATIENT
  Age: 67 Year
  Sex: Male

DRUGS (2)
  1. VICTOZA [Suspect]
     Indication: TYPE 2 DIABETES MELLITUS
     Dosage: 0.6, QD, SUBCUTANEOUS; 1.8, SUBCUTANEOUS
     Route: 058
     Dates: start: 20100402, end: 20100419
  2. VICTOZA [Suspect]
     Indication: TYPE 2 DIABETES MELLITUS
     Dosage: 0.6, QD, SUBCUTANEOUS; 1.8, SUBCUTANEOUS
     Route: 058
     Dates: start: 20100416

REACTIONS (3)
  - CONSTIPATION [None]
  - ERECTILE DYSFUNCTION [None]
  - NAUSEA [None]
